FAERS Safety Report 6884002-1 (Version None)
Quarter: 2010Q3

REPORT INFORMATION
  Report Type: 
  Country: None (occurrence: None)
  Receive Date: 20100729
  Receipt Date: 20100714
  Transmission Date: 20110219
  Serious: Yes (Hospitalization, Other)
  Sender: FDA-Public Use
  Company Number: PHHY2010US39591

PATIENT
  Sex: Male

DRUGS (1)
  1. EXJADE [Suspect]
     Indication: BLOOD TEST ABNORMAL
     Dosage: 1500 MG, QD
     Route: 048
     Dates: start: 20100221

REACTIONS (2)
  - PLASTIC SURGERY TO THE FACE [None]
  - SKIN CANCER [None]
